FAERS Safety Report 24670794 (Version 2)
Quarter: 2024Q4

REPORT INFORMATION
  Report Type: Report from Study
  Country: US (occurrence: US)
  Receive Date: 20241127
  Receipt Date: 20241221
  Transmission Date: 20250114
  Serious: Yes (Hospitalization, Other)
  Sender: BOEHRINGER INGELHEIM
  Company Number: US-BoehringerIngelheim-2024-BI-064541

PATIENT
  Age: 81 Year
  Sex: Female
  Weight: 48.5 kg

DRUGS (2)
  1. OFEV [Suspect]
     Active Substance: NINTEDANIB
     Indication: Idiopathic pulmonary fibrosis
     Route: 048
     Dates: start: 20200122, end: 20200201
  2. AMLODIPINE [Concomitant]
     Active Substance: AMLODIPINE BESYLATE
     Indication: Product used for unknown indication

REACTIONS (4)
  - Bronchitis [Recovering/Resolving]
  - Gastric ulcer haemorrhage [Recovered/Resolved]
  - White blood cell count increased [Recovering/Resolving]
  - Gastrointestinal vascular malformation haemorrhagic [Unknown]

NARRATIVE: CASE EVENT DATE: 20241019
